FAERS Safety Report 8928602 (Version 1)
Quarter: 2012Q4

REPORT INFORMATION
  Report Type: 
  Country: US (occurrence: US)
  Receive Date: 20121128
  Receipt Date: 20121128
  Transmission Date: 20130627
  Serious: Yes (Life-Threatening, Hospitalization, Congenital Anomaly, Other)
  Sender: FDA-Public Use
  Company Number: US-ELI_LILLY_AND_COMPANY-US201211005355

PATIENT

DRUGS (1)
  1. PROZAC [Suspect]
     Dosage: 1 DF, unknown
     Route: 064

REACTIONS (5)
  - Respiratory arrest [Unknown]
  - Craniosynostosis [Unknown]
  - Bradycardia [Unknown]
  - Joint range of motion decreased [Unknown]
  - Foetal exposure during pregnancy [Recovered/Resolved]
